FAERS Safety Report 6331818-6 (Version None)
Quarter: 2009Q3

REPORT INFORMATION
  Report Type: 
  Country: None (occurrence: None)
  Receive Date: 20090826
  Receipt Date: 20090813
  Transmission Date: 20100115
  Serious: Yes (Death, Hospitalization)
  Sender: FDA-Public Use
  Company Number: 8045420

PATIENT
  Age: 51 Year
  Sex: Female

DRUGS (13)
  1. EPINEPHRINE [Suspect]
  2. EPINEPHRINE [Suspect]
  3. EPINEPHRINE [Suspect]
  4. AMIODARONE [Suspect]
  5. PREDNISOLONE [Suspect]
     Indication: B-CELL LYMPHOMA STAGE III
  6. ADRIAMYCIN PFS [Suspect]
     Indication: B-CELL LYMPHOMA STAGE III
  7. CYCLOPHOSPHAMIDE [Suspect]
     Indication: B-CELL LYMPHOMA STAGE III
  8. VINCRISTINE [Suspect]
     Indication: B-CELL LYMPHOMA STAGE III
  9. PIPERACILLIN SODIUM AND TAZOBACTAM SODIUM [Concomitant]
  10. GENTAMICIN [Concomitant]
  11. FLUCONAZOLE [Concomitant]
  12. COTRIM [Concomitant]
  13. MAGNESIUM SULFATE [Concomitant]

REACTIONS (22)
  - ACIDOSIS [None]
  - ATRIAL FIBRILLATION [None]
  - CANDIDIASIS [None]
  - CARDIAC OUTPUT DECREASED [None]
  - COAGULOPATHY [None]
  - CONTINUOUS HAEMODIAFILTRATION [None]
  - DILATATION VENTRICULAR [None]
  - DYSPNOEA [None]
  - HYPOXIA [None]
  - JAUNDICE [None]
  - LABORATORY TEST ABNORMAL [None]
  - LIVER FUNCTION TEST ABNORMAL [None]
  - LOBAR PNEUMONIA [None]
  - MITRAL VALVE INCOMPETENCE [None]
  - NEUTROPENIC SEPSIS [None]
  - OLIGURIA [None]
  - PANCYTOPENIA [None]
  - SEPTIC SHOCK [None]
  - STAPHYLOCOCCAL INFECTION [None]
  - TACHYCARDIA [None]
  - TREATMENT FAILURE [None]
  - VENTRICULAR HYPOKINESIA [None]
